FAERS Safety Report 13404014 (Version 1)
Quarter: 2017Q2

REPORT INFORMATION
  Report Type: Spontaneous
  Country: US (occurrence: US)
  Receive Date: 20170405
  Receipt Date: 20170405
  Transmission Date: 20170830
  Serious: No
  Sender: FDA-Public Use
  Company Number: US-009507513-1703USA007535

PATIENT
  Sex: Male

DRUGS (1)
  1. ASMANEX [Suspect]
     Active Substance: MOMETASONE FUROATE
     Indication: ASTHMA
     Dosage: UNK. THERAPY ROUTE: INHALATION POWDER
     Route: 055
     Dates: start: 20161115

REACTIONS (3)
  - Ear disorder [Not Recovered/Not Resolved]
  - Ear disorder [Recovered/Resolved]
  - Oropharyngeal discomfort [Not Recovered/Not Resolved]
